FAERS Safety Report 8858618 (Version 2)
Quarter: 2012Q4

REPORT INFORMATION
  Report Type: 
  Country: IE (occurrence: IE)
  Receive Date: 20121024
  Receipt Date: 20121205
  Transmission Date: 20130627
  Serious: Yes (Death)
  Sender: FDA-Public Use
  Company Number: IE-PFIZER INC-2012264802

PATIENT
  Age: 77 Year
  Sex: Female
  Weight: 58.6 kg

DRUGS (1)
  1. CYCLOKAPRON [Suspect]
     Indication: TUMOR HEMORRHAGE
     Dosage: 1 g, 3x/day
     Route: 048
     Dates: start: 20121020

REACTIONS (2)
  - Death [Fatal]
  - Off label use [Unknown]
